FAERS Safety Report 22066506 (Version 2)
Quarter: 2023Q2

REPORT INFORMATION
  Report Type: Report from Study
  Country: JP (occurrence: JP)
  Receive Date: 20230306
  Receipt Date: 20230410
  Transmission Date: 20230721
  Serious: Yes (Hospitalization, Other)
  Sender: FDA-Public Use
  Company Number: JP-JAZZ PHARMACEUTICALS-2023-JP-005088

PATIENT
  Age: 16 Year
  Sex: Male
  Weight: 54.3 kg

DRUGS (5)
  1. DEFITELIO [Suspect]
     Active Substance: DEFIBROTIDE SODIUM
     Indication: Venoocclusive liver disease
     Dosage: 25 MILLIGRAM/KILOGRAM, QD
     Route: 042
     Dates: start: 20210804, end: 20210910
  2. ORGARAN [Concomitant]
     Active Substance: DANAPAROID SODIUM
     Indication: Product used for unknown indication
     Dosage: UNK
  3. ACOALAN [Concomitant]
     Indication: Product used for unknown indication
     Dosage: UNK
  4. TOLVAPTAN [Concomitant]
     Active Substance: TOLVAPTAN
     Indication: Product used for unknown indication
     Dosage: UNK
  5. URSO [Concomitant]
     Active Substance: URSODIOL
     Dosage: UNK

REACTIONS (7)
  - Engraftment syndrome [Not Recovered/Not Resolved]
  - Renal disorder [Recovered/Resolved]
  - Pyrexia [Not Recovered/Not Resolved]
  - Pleural effusion [Not Recovered/Not Resolved]
  - Acute graft versus host disease in skin [Recovered/Resolved]
  - Nervous system disorder [Recovered/Resolved]
  - Respiratory disorder [Recovered/Resolved]

NARRATIVE: CASE EVENT DATE: 20210804
